FAERS Safety Report 8726412 (Version 2)
Quarter: 2012Q4

REPORT INFORMATION
  Report Type: 
  Country: US (occurrence: US)
  Receive Date: 20120816
  Receipt Date: 20120829
  Transmission Date: 20130627
  Serious: No
  Sender: FDA-Public Use
  Company Number: US-PFIZER INC-2012197353

PATIENT
  Sex: Male
  Weight: 120 kg

DRUGS (6)
  1. VIAGRA [Suspect]
     Indication: ERECTILE DYSFUNCTION
     Dosage: 100 mg, daily as needed
     Route: 048
  2. VIAGRA [Suspect]
     Indication: HYPERTENSION
  3. PRILOSEC [Concomitant]
     Indication: GASTROOESOPHAGEAL REFLUX DISEASE
     Dosage: 20 mg, daily
  4. XANAX [Concomitant]
     Indication: ANXIETY
     Dosage: 0.5 mg, 4x/day
  5. LIPITOR [Concomitant]
     Indication: BLOOD CHOLESTEROL INCREASED
     Dosage: 20 mg, alternate day
  6. ACETYLSALICYLIC ACID [Concomitant]
     Indication: ANTICOAGULANT THERAPY
     Dosage: 81 mg, daily

REACTIONS (2)
  - Off label use [Unknown]
  - Blood pressure decreased [Unknown]
